FAERS Safety Report 9098036 (Version 2)
Quarter: 2013Q1

REPORT INFORMATION
  Report Type: Spontaneous
  Country: RS (occurrence: RS)
  Receive Date: 20130213
  Receipt Date: 20130220
  Transmission Date: 20140127
  Serious: Yes (Hospitalization)
  Sender: FDA-Public Use
  Company Number: RS-009507513-1302SRB004111

PATIENT
  Age: 52 Year
  Sex: Male

DRUGS (7)
  1. PEGINTRON [Suspect]
     Indication: HEPATITIS C
     Dosage: 100 MICROGRAM, QD
     Route: 042
     Dates: start: 20120528, end: 20130113
  2. PEGINTRON [Suspect]
     Dosage: 100 MICROGRAM, ONCE
     Route: 042
     Dates: start: 20130128, end: 20130128
  3. REBETOL [Suspect]
     Indication: HEPATITIS C
     Dosage: 1200 MG, 3+3
     Route: 048
     Dates: start: 20120528, end: 20130113
  4. REBETOL [Suspect]
     Dosage: 800 MG, 2+2
     Route: 048
     Dates: start: 20130128, end: 20130211
  5. LONGACEF [Concomitant]
     Indication: PNEUMONIA
     Dosage: UNK
     Route: 042
     Dates: start: 20130113, end: 20130118
  6. CIPROCINAL [Concomitant]
     Indication: PNEUMONIA
     Dosage: UNK
     Route: 042
     Dates: start: 20130115, end: 20130128
  7. MERONEM [Concomitant]
     Indication: PNEUMONIA
     Dosage: UNK
     Route: 042
     Dates: start: 20130118, end: 20130128

REACTIONS (7)
  - Pneumonia [Recovered/Resolved with Sequelae]
  - Leukopenia [Recovered/Resolved]
  - Anaemia [Recovered/Resolved]
  - Thrombocytopenia [Recovered/Resolved]
  - Leukopenia [Recovering/Resolving]
  - Anaemia [Recovering/Resolving]
  - Thrombocytopenia [Recovering/Resolving]
